FAERS Safety Report 4373707-2 (Version None)
Quarter: 2004Q1

REPORT INFORMATION
  Report Type: 
  Country: None (occurrence: None)
  Receive Date: 20040305
  Receipt Date: 20040106
  Transmission Date: 20041129
  Serious: Yes (Other)
  Sender: FDA-Public Use
  Company Number: 2004UW00206

PATIENT
  Sex: Male

DRUGS (4)
  1. CRESTOR [Suspect]
     Dosage: 10 MG PO
     Route: 048
  2. NIACIN [Concomitant]
  3. AVAPRO [Concomitant]
  4. LASIX [Concomitant]

REACTIONS (2)
  - MUSCULAR WEAKNESS [None]
  - PERONEAL NERVE PALSY [None]
